FAERS Safety Report 5503665-6 (Version None)
Quarter: 2007Q4

REPORT INFORMATION
  Report Type: 
  Country: None (occurrence: None)
  Receive Date: 20071101
  Receipt Date: 20071026
  Transmission Date: 20080405
  Serious: Yes (Hospitalization)
  Sender: FDA-Public Use
  Company Number: PHFR2007GB03159

PATIENT
  Age: 44 Year
  Sex: Male

DRUGS (4)
  1. TERBINAFINE HCL [Suspect]
     Route: 065
  2. AMLODIPINE [Concomitant]
     Indication: HYPERTENSION
     Dosage: 10MG/DAY
     Route: 048
  3. CARBIMAZOLE [Concomitant]
     Indication: HYPOTHYROIDISM
     Dosage: 5MG/DAY
     Route: 048
  4. DOXAZOSIN MESYLATE [Concomitant]
     Dosage: 4MG/DAY
     Route: 048

REACTIONS (3)
  - HAEMATEMESIS [None]
  - MALLORY-WEISS SYNDROME [None]
  - VOMITING [None]
